FAERS Safety Report 13025115 (Version 1)
Quarter: 2016Q4

REPORT INFORMATION
  Report Type: Spontaneous
  Country: US (occurrence: US)
  Receive Date: 20161213
  Receipt Date: 20161213
  Transmission Date: 20170207
  Serious: Yes (Other)
  Sender: FDA-Public Use
  Company Number: US-ABBVIE-16K-163-1800911-00

PATIENT
  Sex: Male

DRUGS (2)
  1. PREDNISONE. [Suspect]
     Active Substance: PREDNISONE
     Indication: CROHN^S DISEASE
     Route: 065
  2. HUMIRA [Suspect]
     Active Substance: ADALIMUMAB
     Indication: CROHN^S DISEASE
     Route: 058

REACTIONS (9)
  - Tuberculosis [Unknown]
  - Osteoporosis [Unknown]
  - T-cell lymphoma [Unknown]
  - Malaise [Unknown]
  - Pneumonia [Unknown]
  - Streptococcal infection [Unknown]
  - Hypophagia [Unknown]
  - Drug ineffective [Unknown]
  - Asthenia [Unknown]
